FAERS Safety Report 5169376-4 (Version None)
Quarter: 2006Q4

REPORT INFORMATION
  Report Type: 
  Country: None (occurrence: None)
  Receive Date: 20061127
  Receipt Date: 20031015
  Transmission Date: 20070319
  Serious: Yes (Other)
  Sender: FDA-Public Use
  Company Number: GXKR2003GB00984

PATIENT
  Age: 46 Year
  Sex: Male

DRUGS (2)
  1. FLUOXETINE [Suspect]
     Indication: OBSESSIVE-COMPULSIVE DISORDER
     Dosage: 20 MG, QD, ORAL
     Route: 048
     Dates: start: 19991101
  2. HALOPERIDOL [Concomitant]

REACTIONS (7)
  - CONDITION AGGRAVATED [None]
  - DECREASED APPETITE [None]
  - DEPRESSION [None]
  - DRUG INEFFECTIVE [None]
  - EARLY MORNING AWAKENING [None]
  - HUNTINGTON'S CHOREA [None]
  - SLEEP DISORDER [None]
